FAERS Safety Report 5910161-0 (Version None)
Quarter: 2008Q4

REPORT INFORMATION
  Report Type: 
  Country: None (occurrence: None)
  Receive Date: 20081007
  Receipt Date: 20070921
  Transmission Date: 20090506
  Serious: No
  Sender: FDA-Public Use
  Company Number: US-ASTRAZENECA-2007UW22238

PATIENT
  Age: 67 Year
  Sex: Female
  Weight: 81.6 kg

DRUGS (5)
  1. ARIMIDEX [Suspect]
     Indication: BREAST CANCER FEMALE
     Route: 048
     Dates: start: 20050301
  2. COZAAR [Concomitant]
  3. AMLODIPINE [Concomitant]
  4. METOPROLOL TARTRATE [Concomitant]
     Route: 048
  5. HYDROCHLOROTHIAZIDE [Concomitant]

REACTIONS (2)
  - FEELING ABNORMAL [None]
  - MEMORY IMPAIRMENT [None]
